FAERS Safety Report 17306263 (Version 1)
Quarter: 2020Q1

REPORT INFORMATION
  Report Type: Spontaneous
  Country: US (occurrence: US)
  Receive Date: 20200123
  Receipt Date: 20200123
  Transmission Date: 20200409
  Serious: No
  Sender: FDA-Public Use
  Company Number: US-US WORLDMEDS, LLC-USW201907-001407

PATIENT
  Sex: Female

DRUGS (42)
  1. VITAMIN D3 [Concomitant]
     Active Substance: CHOLECALCIFEROL
     Dates: start: 2017
  2. CYMBALTA [Concomitant]
     Active Substance: DULOXETINE HYDROCHLORIDE
     Dates: start: 2017, end: 2018
  3. CYMBALTA [Concomitant]
     Active Substance: DULOXETINE HYDROCHLORIDE
     Dates: end: 2018
  4. SODIUM CHLORIDE. [Concomitant]
     Active Substance: SODIUM CHLORIDE
     Dosage: EVERY 2-3 WEEKS 1000ML OVER 3-6
     Dates: start: 2017
  5. MOBIC [Concomitant]
     Active Substance: MELOXICAM
     Dates: start: 2017
  6. LACTOBACILLUS ACIDOPHILUS\LACTOBACILLUS BULGARICUS [Concomitant]
     Active Substance: LACTOBACILLUS ACIDOPHILUS\LACTOBACILLUS DELBRUECKII SUBSP. BULGARICUS
     Indication: GASTROINTESTINAL HAEMORRHAGE
     Dates: end: 201710
  7. GABAPENTIN. [Suspect]
     Active Substance: GABAPENTIN
     Indication: PAIN MANAGEMENT
     Dates: start: 20170927, end: 201710
  8. GABAPENTIN. [Suspect]
     Active Substance: GABAPENTIN
     Indication: NEUROPATHY PERIPHERAL
  9. NALTREXONE [Concomitant]
     Active Substance: NALTREXONE
     Dates: start: 2017, end: 201710
  10. PHENERGAN [Concomitant]
     Active Substance: PROMETHAZINE HYDROCHLORIDE
     Dates: start: 2017
  11. SENNA- DOCUSATE [Concomitant]
     Dates: start: 2017
  12. COMPAZINE [Concomitant]
     Active Substance: PROCHLORPERAZINE MALEATE
  13. HALDOL [Concomitant]
     Active Substance: HALOPERIDOL
  14. REGLAN [Concomitant]
     Active Substance: METOCLOPRAMIDE HYDROCHLORIDE
  15. TYLENOL [Concomitant]
     Active Substance: ACETAMINOPHEN
  16. TAZTIA XT [Concomitant]
     Active Substance: DILTIAZEM HYDROCHLORIDE
     Dates: start: 2017, end: 2017
  17. SOMINEX [Concomitant]
     Active Substance: DIPHENHYDRAMINE HYDROCHLORIDE
  18. TORADOL [Concomitant]
     Active Substance: KETOROLAC TROMETHAMINE
  19. LACTATED RINGERS SOLUTION [Concomitant]
     Active Substance: CALCIUM CHLORIDE\POTASSIUM CHLORIDE\SODIUM CHLORIDE\SODIUM LACTATE
  20. GABAPENTIN. [Suspect]
     Active Substance: GABAPENTIN
     Indication: PAIN IN EXTREMITY
  21. VITAMIN B COMPLEX [Concomitant]
     Active Substance: CYANOCOBALAMIN\DEXPANTHENOL\NIACINAMIDE\PYRIDOXINE HYDROCHLORIDE\RIBOFLAVIN 5^-PHOSPHATE SODIUM\THIAMINE HYDROCHLORIDE\VITAMIN B COMPLEX
     Dates: start: 2017
  22. CALCIUM CARBONATE. [Concomitant]
     Active Substance: CALCIUM CARBONATE
     Dates: start: 2017
  23. VITAMIN D3 [Concomitant]
     Active Substance: CHOLECALCIFEROL
     Dates: start: 2017
  24. ULTRAM [Concomitant]
     Active Substance: TRAMADOL HYDROCHLORIDE
     Dates: start: 2017
  25. KLONOPIN [Concomitant]
     Active Substance: CLONAZEPAM
     Dates: start: 2017
  26. KLONOPIN [Concomitant]
     Active Substance: CLONAZEPAM
     Dates: start: 2017
  27. PROTONIX [Concomitant]
     Active Substance: PANTOPRAZOLE SODIUM
     Dates: start: 2017
  28. PROAMATINE [Concomitant]
     Active Substance: MIDODRINE HYDROCHLORIDE
     Dates: start: 2017
  29. SOLU- MEDROL [Concomitant]
  30. VALIUM [Concomitant]
     Active Substance: DIAZEPAM
     Dates: start: 20171013
  31. TRINESSA [Concomitant]
     Active Substance: ETHINYL ESTRADIOL\NORGESTIMATE
  32. MAGNESIUM OXIDE. [Concomitant]
     Active Substance: MAGNESIUM OXIDE
  33. NADOLOL. [Suspect]
     Active Substance: NADOLOL
     Indication: PRODUCT USED FOR UNKNOWN INDICATION
     Dates: start: 2017
  34. REMERON [Concomitant]
     Active Substance: MIRTAZAPINE
     Dosage: TAKE 7.5 MG AT BED
     Dates: start: 20170921
  35. GABAPENTIN. [Suspect]
     Active Substance: GABAPENTIN
     Indication: MIGRAINE
  36. IMITREX [Concomitant]
     Active Substance: SUMATRIPTAN SUCCINATE
  37. VALIUM [Concomitant]
     Active Substance: DIAZEPAM
     Dates: start: 20171013
  38. ZOFRAN [Concomitant]
     Active Substance: ONDANSETRON HYDROCHLORIDE
     Dates: start: 2017
  39. BENTYL [Concomitant]
     Active Substance: DICYCLOMINE HYDROCHLORIDE
     Dates: start: 2017
  40. MAGNESIUM OXIDE. [Concomitant]
     Active Substance: MAGNESIUM OXIDE
  41. LEXAPRO [Concomitant]
     Active Substance: ESCITALOPRAM OXALATE
     Dates: start: 2017, end: 2017
  42. MORPHINE [Concomitant]
     Active Substance: MORPHINE

REACTIONS (1)
  - Drug ineffective [Unknown]
